FAERS Safety Report 21613744 (Version 4)
Quarter: 2024Q3

REPORT INFORMATION
  Report Type: Spontaneous
  Country: US (occurrence: US)
  Receive Date: 20221118
  Receipt Date: 20240704
  Transmission Date: 20241017
  Serious: Yes (Other)
  Sender: SANOFI AVENTIS
  Company Number: US-SA-SAC20221117001296

PATIENT
  Age: 41 Year
  Sex: Male

DRUGS (2)
  1. ELOCTATE [Suspect]
     Active Substance: EFMOROCTOCOG ALFA
     Dosage: 2000 IU, PRN
     Route: 042
  2. ELOCTATE [Suspect]
     Active Substance: EFMOROCTOCOG ALFA
     Dosage: 2000 IU, PRN
     Route: 042

REACTIONS (4)
  - Gastrointestinal haemorrhage [Unknown]
  - Post procedural haemorrhage [Unknown]
  - Weight decreased [Unknown]
  - Tooth extraction [Unknown]

NARRATIVE: CASE EVENT DATE: 20221025
